FAERS Safety Report 8987565 (Version 4)
Quarter: 2015Q3

REPORT INFORMATION
  Report Type: Spontaneous
  Country: US (occurrence: US)
  Receive Date: 20121227
  Receipt Date: 20150724
  Transmission Date: 20151125
  Serious: No
  Sender: FDA-Public Use
  Company Number: US-009507513-1212USA009165

PATIENT
  Sex: Male
  Weight: 71.2 kg

DRUGS (1)
  1. PROPECIA [Suspect]
     Active Substance: FINASTERIDE
     Indication: ANDROGENETIC ALOPECIA
     Dosage: 1 MG, QD
     Route: 048
     Dates: start: 20100302, end: 20110916

REACTIONS (12)
  - Diabetes mellitus [Unknown]
  - Genital disorder male [Unknown]
  - Stress [Not Recovered/Not Resolved]
  - Penis injury [Unknown]
  - Peyronie^s disease [Unknown]
  - Blood cholesterol increased [Recovered/Resolved]
  - Sexual dysfunction [Not Recovered/Not Resolved]
  - Cognitive disorder [Not Recovered/Not Resolved]
  - Hydrocele [Unknown]
  - Erectile dysfunction [Unknown]
  - Depression [Not Recovered/Not Resolved]
  - Prostatitis [Unknown]

NARRATIVE: CASE EVENT DATE: 2010
